FAERS Safety Report 16127077 (Version 7)
Quarter: 2022Q4

REPORT INFORMATION
  Report Type: Report from Study
  Country: PL (occurrence: None)
  Receive Date: 20190328
  Receipt Date: 20221104
  Transmission Date: 20230112
  Serious: Yes (Hospitalization)
  Sender: FDA-Public Use
  Company Number: PL-ROCHE-2288547

PATIENT
  Age: 53 Year
  Sex: Female
  Weight: 65 kg

DRUGS (12)
  1. ATEZOLIZUMAB [Suspect]
     Active Substance: ATEZOLIZUMAB
     Indication: Renal cell carcinoma
     Dosage: DATE OF MOST RECENT DOSE OF ATEZOLIZUMAB: 22/FEB/2019 AT 15:23
     Route: 042
     Dates: start: 20180824
  2. BISOPROLOL [Concomitant]
     Active Substance: BISOPROLOL
     Route: 048
  3. DEXKETOPROFEN\TRAMADOL [Concomitant]
     Active Substance: DEXKETOPROFEN\TRAMADOL
     Dosage: DEXKETOPROFEN 25 MG + TRAMADOL 75 MG
     Route: 048
     Dates: start: 20180618
  4. PANTOPRAZOLE [Concomitant]
     Active Substance: PANTOPRAZOLE
     Route: 048
     Dates: start: 20180919
  5. LEVOTHYROXINE [Concomitant]
     Active Substance: LEVOTHYROXINE
     Route: 048
     Dates: start: 20181101, end: 20190122
  6. LEVOTHYROXINE [Concomitant]
     Active Substance: LEVOTHYROXINE
     Route: 048
     Dates: start: 20190123
  7. CHOLECALCIFEROL [Concomitant]
     Active Substance: CHOLECALCIFEROL
     Dosage: 2000 UNIT
     Route: 048
     Dates: start: 20181126
  8. VALSARTAN [Concomitant]
     Active Substance: VALSARTAN
     Route: 048
     Dates: start: 20181127
  9. AMLODIPINE [Concomitant]
     Active Substance: AMLODIPINE BESYLATE
     Route: 048
     Dates: start: 20181127
  10. CAPTOPRIL [Concomitant]
     Active Substance: CAPTOPRIL
     Route: 048
     Dates: start: 20190121, end: 20190121
  11. CAPTOPRIL [Concomitant]
     Active Substance: CAPTOPRIL
     Route: 048
     Dates: start: 20190201
  12. FUROSEMIDE [Concomitant]
     Active Substance: FUROSEMIDE
     Route: 042
     Dates: start: 20190121, end: 20190121

REACTIONS (1)
  - Ventricular arrhythmia [Not Recovered/Not Resolved]

NARRATIVE: CASE EVENT DATE: 20190201
